FAERS Safety Report 9243254 (Version 2)
Quarter: 2013Q2

REPORT INFORMATION
  Report Type: Spontaneous
  Country: US (occurrence: US)
  Receive Date: 20130419
  Receipt Date: 20130606
  Transmission Date: 20140414
  Serious: Yes (Other)
  Sender: FDA-Public Use
  Company Number: US-FRI-1000044345

PATIENT
  Age: 45 Year
  Sex: Male
  Weight: 90.72 kg

DRUGS (5)
  1. BYSTOLIC [Suspect]
     Indication: HYPERTENSION
     Dosage: 5 MG
     Route: 048
     Dates: start: 2008
  2. OTC PRILOSEC [Concomitant]
  3. BABY ASPIRIN [Concomitant]
  4. FISH OIL [Concomitant]
  5. MVI [Concomitant]

REACTIONS (1)
  - Coeliac disease [Not Recovered/Not Resolved]
